FAERS Safety Report 25548425 (Version 1)
Quarter: 2025Q3

REPORT INFORMATION
  Report Type: Report from Study
  Country: US (occurrence: US)
  Receive Date: 20250714
  Receipt Date: 20250714
  Transmission Date: 20251021
  Serious: Yes (Death, Hospitalization)
  Sender: ALEXION PHARMACEUTICALS
  Company Number: US-AstraZeneca-CH-00909450A

PATIENT
  Sex: Male

DRUGS (1)
  1. ULTOMIRIS [Suspect]
     Active Substance: RAVULIZUMAB-CWVZ
     Indication: Paroxysmal nocturnal haemoglobinuria

REACTIONS (7)
  - Pyrexia [Fatal]
  - Nasopharyngitis [Fatal]
  - White blood cell count increased [Fatal]
  - Infection [Fatal]
  - Dyspnoea [Fatal]
  - Hypotension [Fatal]
  - Chills [Fatal]
